FAERS Safety Report 19651515 (Version 2)
Quarter: 2021Q3

REPORT INFORMATION
  Report Type: Spontaneous
  Country: AU (occurrence: AU)
  Receive Date: 20210803
  Receipt Date: 20210818
  Transmission Date: 20211014
  Serious: No
  Sender: FDA-Public Use
  Company Number: AU-GLAXOSMITHKLINE-AU2021APC164436

PATIENT
  Sex: Female

DRUGS (1)
  1. ASMOL (SALBUTAMOL SULPHATE) [Suspect]
     Active Substance: ALBUTEROL SULFATE
     Indication: PRODUCT USED FOR UNKNOWN INDICATION
     Dosage: 100MCG 1X200D
     Route: 055

REACTIONS (5)
  - Product complaint [Unknown]
  - Device delivery system issue [Unknown]
  - Drug ineffective [Unknown]
  - Device difficult to use [Unknown]
  - Wrong technique in device usage process [Unknown]
